FAERS Safety Report 5840263-9 (Version None)
Quarter: 2008Q3

REPORT INFORMATION
  Report Type: 
  Country: None (occurrence: None)
  Receive Date: 20080811
  Receipt Date: 20080801
  Transmission Date: 20090109
  Serious: Yes (Hospitalization)
  Sender: FDA-Public Use
  Company Number: GR-ABBOTT-08P-066-0468490-00

PATIENT
  Age: 49 Year
  Sex: Female

DRUGS (4)
  1. DEPAKENE [Suspect]
     Indication: PROPHYLAXIS
     Route: 048
     Dates: start: 20080101, end: 20080712
  2. LEFLUNOMIDE [Suspect]
     Indication: DRUG USE FOR UNKNOWN INDICATION
     Route: 048
     Dates: end: 20080712
  3. LEVETIRACETAM [Suspect]
     Indication: DRUG USE FOR UNKNOWN INDICATION
     Route: 048
     Dates: end: 20080712
  4. ACECLOFENAC [Suspect]
     Indication: DRUG USE FOR UNKNOWN INDICATION
     Route: 048
     Dates: end: 20080712

REACTIONS (1)
  - JAUNDICE [None]
